FAERS Safety Report 4501694-2 (Version None)
Quarter: 2004Q4

REPORT INFORMATION
  Report Type: 
  Country: None (occurrence: None)
  Receive Date: 20041115
  Receipt Date: 20041115
  Transmission Date: 20050328
  Serious: Yes (Hospitalization)
  Sender: FDA-Public Use
  Company Number: None

PATIENT
  Age: 44 Year
  Sex: Male
  Weight: 63 kg

DRUGS (1)
  1. PROPOFOL [Suspect]
     Dates: start: 20040810, end: 20040816

REACTIONS (3)
  - ANOXIA [None]
  - CARDIAC ARREST [None]
  - PARAPLEGIA [None]
